FAERS Safety Report 23045215 (Version 2)
Quarter: 2023Q4

REPORT INFORMATION
  Report Type: Other
  Country: GR (occurrence: None)
  Receive Date: 20231009
  Receipt Date: 20231123
  Transmission Date: 20240110
  Serious: No
  Sender: FDA-Public Use
  Company Number: GR-AMGEN-GRCSP2023166836

PATIENT
  Age: 3 Year
  Sex: Female

DRUGS (3)
  1. BEVACIZUMAB [Suspect]
     Active Substance: BEVACIZUMAB
     Indication: Optic glioma
     Route: 065
  2. VINCRISTINE [Concomitant]
     Active Substance: VINCRISTINE
  3. CARBOPLATIN [Concomitant]
     Active Substance: CARBOPLATIN

REACTIONS (2)
  - Off label use [Unknown]
  - No adverse event [Unknown]
